FAERS Safety Report 23481125 (Version 1)
Quarter: 2024Q1

REPORT INFORMATION
  Report Type: Spontaneous
  Country: ES (occurrence: ES)
  Receive Date: 20240205
  Receipt Date: 20240205
  Transmission Date: 20240409
  Serious: Yes (Other)
  Sender: FDA-Public Use
  Company Number: None

PATIENT
  Age: 69 Year
  Sex: Female
  Weight: 51 kg

DRUGS (13)
  1. LINEZOLID [Suspect]
     Active Substance: LINEZOLID
     Indication: Catheter site infection
     Dosage: LINEZOLID TEVA PHARMA 600 MG EFG ,10 TABLETS (AL/AL BLISTER)
     Route: 048
     Dates: start: 20231109, end: 20231112
  2. SODIUM BICARBONATE [Concomitant]
     Active Substance: SODIUM BICARBONATE
     Indication: Product used for unknown indication
     Dosage: SODIO BICARBONATO
     Route: 048
     Dates: start: 20210929
  3. ARANESP [Concomitant]
     Active Substance: DARBEPOETIN ALFA
     Indication: Product used for unknown indication
     Route: 058
  4. ENALAPRIL [Concomitant]
     Active Substance: ENALAPRIL
     Indication: Product used for unknown indication
     Dosage: ENALAPRIL (2142A)
     Route: 048
     Dates: start: 20210406
  5. SEVELAMERO [Concomitant]
     Indication: Product used for unknown indication
     Route: 048
     Dates: start: 20220602
  6. DOXAZOSIN MESYLATE [Concomitant]
     Active Substance: DOXAZOSIN MESYLATE
     Indication: Product used for unknown indication
     Dosage: DOXAZOSINA (2387A)
     Route: 048
     Dates: start: 20210310
  7. HDROFEROL [Concomitant]
     Indication: Product used for unknown indication
     Route: 048
     Dates: start: 20230704
  8. FERINJECT [Concomitant]
     Active Substance: FERRIC CARBOXYMALTOSE
     Indication: Product used for unknown indication
     Dosage: DISPERSION FOR INJECTION AND INFUSION
     Dates: start: 202307
  9. OMEPRAZOLE [Concomitant]
     Active Substance: OMEPRAZOLE
     Indication: Product used for unknown indication
     Dosage: OMEPRAZOL (2141A)
     Route: 048
     Dates: start: 20231004
  10. RENVELA [Concomitant]
     Active Substance: SEVELAMER CARBONATE
     Indication: Product used for unknown indication
     Route: 048
  11. SIMVASTATIN [Concomitant]
     Active Substance: SIMVASTATIN
     Indication: Product used for unknown indication
     Dosage: SIMVASTATINA (1023A)
     Route: 048
     Dates: start: 20130603
  12. ALLOPURINOL [Concomitant]
     Active Substance: ALLOPURINOL
     Indication: Product used for unknown indication
     Dosage: ALOPURINOL (318A)
     Route: 048
     Dates: start: 20210929
  13. FUROSEMIDE [Concomitant]
     Active Substance: FUROSEMIDE
     Indication: Product used for unknown indication
     Dosage: FUROSEMIDA (1615A)
     Route: 048
     Dates: start: 20220628

REACTIONS (3)
  - Dry mouth [Recovered/Resolved]
  - Diarrhoea [Recovered/Resolved]
  - Nausea [Recovered/Resolved]

NARRATIVE: CASE EVENT DATE: 20231109
